FAERS Safety Report 7758500-2 (Version None)
Quarter: 2011Q3

REPORT INFORMATION
  Report Type: 
  Country: None (occurrence: None)
  Receive Date: 20110825
  Receipt Date: 20110701
  Transmission Date: 20111222
  Serious: Yes (Other)
  Sender: FDA-Public Use
  Company Number: 331260

PATIENT
  Sex: Female
  Weight: 108.2 kg

DRUGS (2)
  1. HYDROCHLOROTHIAZIDE [Concomitant]
  2. VICTOZA [Suspect]
     Indication: PRODUCT USED FOR UNKNOWN INDICATION
     Dosage: SUBCUTANEOUS
     Route: 058
     Dates: start: 20101118, end: 20110601

REACTIONS (1)
  - PANCREATITIS [None]
